FAERS Safety Report 25634615 (Version 1)
Quarter: 2025Q3

REPORT INFORMATION
  Report Type: Spontaneous
  Country: CN (occurrence: CN)
  Receive Date: 20250801
  Receipt Date: 20250801
  Transmission Date: 20251021
  Serious: Yes (Hospitalization, Other)
  Sender: DR REDDYS
  Company Number: CN-CHN-CHN/2025/07/011290

PATIENT
  Age: 30 Year
  Sex: Male

DRUGS (6)
  1. PREGABALIN [Suspect]
     Active Substance: PREGABALIN
     Indication: Euphoric mood
     Route: 048
     Dates: start: 202312, end: 2024
  2. PREGABALIN [Suspect]
     Active Substance: PREGABALIN
     Route: 048
     Dates: start: 202312, end: 2024
  3. PREGABALIN [Suspect]
     Active Substance: PREGABALIN
     Route: 048
     Dates: start: 202312, end: 2024
  4. PREGABALIN [Suspect]
     Active Substance: PREGABALIN
     Route: 048
     Dates: start: 202312, end: 2024
  5. PREGABALIN [Suspect]
     Active Substance: PREGABALIN
     Route: 048
     Dates: start: 202312, end: 2024
  6. OLANZAPINE [Suspect]
     Active Substance: OLANZAPINE
     Indication: Product used for unknown indication
     Dosage: ONCE DAILY
     Dates: start: 2024

REACTIONS (6)
  - Hepatic failure [Recovering/Resolving]
  - Drug dependence [Recovering/Resolving]
  - Overdose [Unknown]
  - Drug withdrawal syndrome [Recovering/Resolving]
  - Drug abuse [Unknown]
  - Treatment noncompliance [Unknown]
